FAERS Safety Report 16877140 (Version 2)
Quarter: 2019Q4

REPORT INFORMATION
  Report Type: Spontaneous
  Country: US (occurrence: US)
  Receive Date: 20191002
  Receipt Date: 20191118
  Transmission Date: 20200122
  Serious: Yes (Hospitalization, Other)
  Sender: FDA-Public Use
  Company Number: US-PFIZER INC-2019422416

PATIENT
  Age: 57 Year
  Sex: Male

DRUGS (2)
  1. XALKORI [Suspect]
     Active Substance: CRIZOTINIB
     Dosage: 250 MG, ALTERNATE DAY (EVERY OTHER DAY)
     Dates: start: 20191001, end: 20191031
  2. XALKORI [Suspect]
     Active Substance: CRIZOTINIB
     Indication: LUNG NEOPLASM MALIGNANT
     Dosage: 250 MG, UNK
     Dates: end: 20190919

REACTIONS (5)
  - Abdominal pain [Unknown]
  - Ear pain [Unknown]
  - Chest pain [Unknown]
  - Deafness unilateral [Unknown]
  - Asthenia [Unknown]
